FAERS Safety Report 5668014-1 (Version None)
Quarter: 2008Q1

REPORT INFORMATION
  Report Type: 
  Country: None (occurrence: None)
  Receive Date: 20080315
  Receipt Date: 20080212
  Transmission Date: 20080703
  Serious: No
  Sender: FDA-Public Use
  Company Number: US-ABBOTT-08P-163-0438308-00

PATIENT
  Sex: Female
  Weight: 113.5 kg

DRUGS (14)
  1. HUMIRA [Suspect]
     Indication: RHEUMATOID ARTHRITIS
     Route: 058
     Dates: start: 20070901
  2. PREDNISONE [Concomitant]
     Indication: RHEUMATOID ARTHRITIS
     Route: 048
  3. FOLIC ACID [Concomitant]
     Indication: VITAMIN SUPPLEMENTATION
     Route: 048
  4. CORET [Concomitant]
     Indication: CARDIAC DISORDER
     Route: 048
  5. LEXIPRIL [Concomitant]
     Indication: CARDIAC DISORDER
     Route: 048
  6. DIGOXIN [Concomitant]
     Indication: CARDIAC FAILURE CONGESTIVE
     Route: 048
  7. GENERIC LASIX [Concomitant]
     Indication: CARDIAC FAILURE CONGESTIVE
     Route: 048
  8. SYNTHROID [Concomitant]
     Indication: HYPOTHYROIDISM
     Route: 048
  9. POTASSIUM REPLACEMENT [Concomitant]
     Indication: MINERAL SUPPLEMENTATION
     Route: 048
  10. CYANOCOBALAMIN-TANNIN COMPLEX [Concomitant]
     Indication: VITAMIN SUPPLEMENTATION
     Route: 048
  11. ACTONEL-CALCIUM [Concomitant]
     Indication: MINERAL SUPPLEMENTATION
     Route: 048
  12. GLUBUTAL [Concomitant]
     Indication: RHEUMATOID ARTHRITIS
     Route: 048
  13. ASPIRIN [Concomitant]
     Indication: CARDIAC DISORDER
     Route: 048
  14. ROSIGLITAZONE MALEATE [Concomitant]
     Indication: DIABETES MELLITUS
     Route: 048

REACTIONS (5)
  - BODY TEMPERATURE INCREASED [None]
  - DIARRHOEA [None]
  - HEADACHE [None]
  - NASOPHARYNGITIS [None]
  - VIRAL INFECTION [None]
